FAERS Safety Report 21637209 (Version 1)
Quarter: 2022Q4

REPORT INFORMATION
  Report Type: Other
  Country: CN (occurrence: CN)
  Receive Date: 20221124
  Receipt Date: 20221124
  Transmission Date: 20230113
  Serious: Yes (Other)
  Sender: FDA-Public Use
  Company Number: CN-BoehringerIngelheim-2022-BI-203535

PATIENT

DRUGS (2)
  1. ALTEPLASE [Suspect]
     Active Substance: ALTEPLASE
     Indication: Cerebral infarction
     Dosage: DOSAGE WAS CONTROLLED AT 0.9 MG/KG, AND THE MAXIMUM DOSAGE WAS LESS THAN EQUAL TO 90 MG. FIRST, 10 P
     Route: 042
  2. ALTEPLASE [Suspect]
     Active Substance: ALTEPLASE
     Dosage: THE REMAINING 90 PERCENT OF THE DOSE NEEDS TO BE INTRAVENOUSLY INFUSED CONTINUOUSLY FOR 60 MIN
     Route: 042

REACTIONS (2)
  - Drug ineffective [Unknown]
  - No adverse event [Unknown]
